FAERS Safety Report 17295489 (Version 1)
Quarter: 2020Q1

REPORT INFORMATION
  Report Type: Spontaneous
  Country: DE (occurrence: DE)
  Receive Date: 20200121
  Receipt Date: 20200121
  Transmission Date: 20200409
  Serious: Yes (Other)
  Sender: FDA-Public Use
  Company Number: DE-PFIZER INC-2020024683

PATIENT
  Age: 60 Year
  Sex: Female

DRUGS (11)
  1. MIRTAZAPIN [Suspect]
     Active Substance: MIRTAZAPINE
     Dosage: 15 MG, 1X/DAY
     Dates: start: 20181121
  2. L-THYROXIN [LEVOTHYROXINE SODIUM] [Concomitant]
     Active Substance: LEVOTHYROXINE SODIUM
     Dosage: 100 UG, 1X/DAY; FOR YEARS
  3. VENLAFAXINE HCL [Suspect]
     Active Substance: VENLAFAXINE HYDROCHLORIDE
     Dosage: 150 MG, 1X/DAY
     Dates: start: 20181122, end: 20181128
  4. MIRTAZAPIN [Suspect]
     Active Substance: MIRTAZAPINE
     Dosage: 30 MG, 1X/DAY
     Dates: start: 20181120, end: 20181120
  5. REAGILA [Suspect]
     Active Substance: CARIPRAZINE
     Dosage: 3 MG, 1X/DAY
     Dates: start: 20181121
  6. VENLAFAXINE HCL [Suspect]
     Active Substance: VENLAFAXINE HYDROCHLORIDE
     Dosage: 75 MG, 1X/DAY
     Dates: start: 20181121, end: 20181121
  7. ASPIRIN. [Concomitant]
     Active Substance: ASPIRIN
     Dosage: 100 MG, 1X/DAY
     Dates: start: 20181108
  8. LAMOTRIGIN [Suspect]
     Active Substance: LAMOTRIGINE
     Dosage: 150 MG, 1X/DAY
  9. REAGILA [Suspect]
     Active Substance: CARIPRAZINE
     Dosage: 1.5 MG, 1X/DAY
     Dates: start: 20181115, end: 20181120
  10. PIPAMPERON [Suspect]
     Active Substance: PIPAMPERONE HYDROCHLORIDE
     Dosage: 40 MG, 1X/DAY
     Dates: start: 20181104
  11. MIRTAZAPIN [Suspect]
     Active Substance: MIRTAZAPINE
     Dosage: 45 MG, 1X/DAY; FOR MONTHS
     Dates: end: 20181119

REACTIONS (1)
  - Tongue discomfort [Recovered/Resolved]

NARRATIVE: CASE EVENT DATE: 20181124
